FAERS Safety Report 6284158-8 (Version None)
Quarter: 2009Q3

REPORT INFORMATION
  Report Type: 
  Country: None (occurrence: None)
  Receive Date: 20090723
  Receipt Date: 20090709
  Transmission Date: 20100115
  Serious: No
  Sender: FDA-Public Use
  Company Number: 8048938

PATIENT
  Age: 79 Year
  Sex: Female
  Weight: 63.5 kg

DRUGS (12)
  1. KEPPRA [Suspect]
     Indication: CONVULSION
     Dosage: 500 MG 2/D ITC
     Dates: start: 20080901, end: 20090401
  2. LEVETIRACETAM [Suspect]
     Dosage: 500 MG 2/D ITC
     Dates: start: 20090401, end: 20090601
  3. LEVETIRACETAM [Suspect]
     Dosage: 500 MG /D ITC
     Dates: start: 20090601
  4. MACRODANTIN [Concomitant]
  5. POTASSIUM CHLORIDE [Concomitant]
  6. RANITIDINE [Concomitant]
  7. CENTRUM [Concomitant]
  8. METAMUCIL [Concomitant]
  9. MIRALAX [Concomitant]
  10. FOSAMAX [Concomitant]
  11. IRON [Concomitant]
  12. DIFLUCAN [Concomitant]

REACTIONS (3)
  - DECREASED APPETITE [None]
  - FATIGUE [None]
  - SOMNOLENCE [None]
